FAERS Safety Report 12702048 (Version 3)
Quarter: 2016Q4

REPORT INFORMATION
  Report Type: Spontaneous
  Country: IT (occurrence: IT)
  Receive Date: 20160831
  Receipt Date: 20161229
  Transmission Date: 20170207
  Serious: Yes (Hospitalization, Other)
  Sender: FDA-Public Use
  Company Number: IT-009507513-1608ITA011585

PATIENT
  Age: 63 Year
  Sex: Female
  Weight: 60 kg

DRUGS (11)
  1. DEXAMETHASONE. [Concomitant]
     Active Substance: DEXAMETHASONE
     Route: 048
  2. PLASIL [Concomitant]
     Active Substance: METOCLOPRAMIDE HYDROCHLORIDE
     Route: 048
  3. TEMOZOLOMIDE. [Suspect]
     Active Substance: TEMOZOLOMIDE
     Indication: GLIOBLASTOMA
     Dosage: 100 MG, QD (TOTAL DAILY DOSE: 120 MG (100 MG + 20 MG HARD CAPSULE)
     Route: 048
     Dates: start: 20150903, end: 20151009
  4. MOVICOL [Concomitant]
     Active Substance: POLYETHYLENE GLYCOL 3350\POTASSIUM CHLORIDE\SODIUM BICARBONATE\SODIUM CHLORIDE
     Route: 048
  5. KEPPRA [Concomitant]
     Active Substance: LEVETIRACETAM
     Route: 048
  6. TEMOZOLOMIDE. [Suspect]
     Active Substance: TEMOZOLOMIDE
     Dosage: 100 MG, QD (TOTAL DOSE: 150 MG (100 MG+ 20MG+ 5MG HARD CAPSULE, TWO CYCLES, 5 CONSECUTIVE DAYS)
     Route: 048
     Dates: start: 20151120, end: 20151130
  7. TEMOZOLOMIDE. [Suspect]
     Active Substance: TEMOZOLOMIDE
     Dosage: TOTAL DOSE: 150 MG (100 MG+ 20MG+ 5MG HARD CAPSULE, TWO CYCLES, 5 CONSECUTIVE DAYS EACH
     Route: 048
     Dates: start: 20151120, end: 20151130
  8. TEMOZOLOMIDE. [Suspect]
     Active Substance: TEMOZOLOMIDE
     Indication: GLIOBLASTOMA
     Dosage: TOTAL DOSE: 150 MG (100 MG+ 20MG+ 5MG HARD CAPSULE, TWO CYCLES, 5 CONSECUTIVE DAYS
     Route: 048
     Dates: start: 20151120, end: 20151130
  9. TEMODAL [Suspect]
     Active Substance: TEMOZOLOMIDE
     Indication: GLIOBLASTOMA
     Dosage: 250 MG, QD (ONE CYCLE, 5 CONSECUTIVE DAYS)
     Route: 048
     Dates: start: 20151218, end: 20151222
  10. TEMOZOLOMIDE. [Suspect]
     Active Substance: TEMOZOLOMIDE
     Indication: GLIOBLASTOMA
     Dosage: 20 MG, QD (TOTAL DAILY DOSE: 120 MG (100 MG + 20 MG HARD CAPSULE)
     Route: 048
     Dates: start: 20150903, end: 20151009
  11. ONDANSETRON TEVA [Concomitant]
     Active Substance: ONDANSETRON
     Route: 048

REACTIONS (6)
  - Confusional state [Recovering/Resolving]
  - Balance disorder [Recovering/Resolving]
  - Anaemia [Recovering/Resolving]
  - Disorientation [Recovering/Resolving]
  - Neutropenia [Recovering/Resolving]
  - Thrombocytopenia [Recovering/Resolving]

NARRATIVE: CASE EVENT DATE: 20160217
